FAERS Safety Report 5940537-7 (Version None)
Quarter: 2008Q4

REPORT INFORMATION
  Report Type: 
  Country: None (occurrence: None)
  Receive Date: 20081104
  Receipt Date: 20081031
  Transmission Date: 20090506
  Serious: Yes (Disabling)
  Sender: FDA-Public Use
  Company Number: US-MERCK-0803USA01659

PATIENT
  Age: 37 Year
  Sex: Male

DRUGS (4)
  1. MAXALT [Suspect]
     Indication: MIGRAINE
     Route: 048
  2. [THERAPY UNSPECIFIED] [Concomitant]
     Route: 065
  3. VIOXX [Suspect]
     Route: 048
  4. ASPIRIN [Concomitant]
     Route: 065

REACTIONS (2)
  - CENTRAL NERVOUS SYSTEM LESION [None]
  - CEREBROVASCULAR ACCIDENT [None]
